FAERS Safety Report 8580891-3 (Version None)
Quarter: 2012Q3

REPORT INFORMATION
  Report Type: 
  Country: None (occurrence: None)
  Receive Date: 20120809
  Receipt Date: 20120730
  Transmission Date: 20120928
  Serious: Yes (Hospitalization)
  Sender: FDA-Public Use
  Company Number: US-BAYER-2012-038691

PATIENT
  Age: 26 Year
  Sex: Female

DRUGS (15)
  1. YAZ [Suspect]
     Indication: CONTRACEPTION
     Dosage: UNK
     Dates: start: 20050801, end: 20080401
  2. ZOFRAN [Concomitant]
     Dosage: 4 MG, UNK
     Route: 042
     Dates: start: 20080409
  3. YASMIN [Suspect]
     Indication: CONTRACEPTION
     Dosage: UNK
     Dates: start: 20050801, end: 20080401
  4. ZOFRAN [Concomitant]
     Dosage: 4 MG, UNK
     Route: 048
     Dates: start: 20080413
  5. BACTRIM [Concomitant]
     Dosage: UNK
     Route: 048
     Dates: start: 20080410
  6. MILK OF MAGNESIA TAB [Concomitant]
     Dosage: UNK
     Route: 048
     Dates: start: 20080413
  7. MORPHINE SULFATE [Concomitant]
     Dosage: 50 MG, UNK
     Route: 048
     Dates: start: 20080412, end: 20080414
  8. VICODIN [Concomitant]
     Dosage: UNK
     Route: 048
     Dates: start: 20080412, end: 20080414
  9. LEVOTHYROXINE SODIUM [Concomitant]
     Indication: THYROID DISORDER
  10. NAPROXEN [Concomitant]
     Dosage: UNK
     Route: 048
     Dates: start: 20080410
  11. DARVOCET [Concomitant]
     Dosage: UNK
     Route: 048
     Dates: start: 20080413, end: 20080414
  12. TOPIRAMATE [Concomitant]
     Indication: MIGRAINE
  13. DULCOLAX [Concomitant]
     Dosage: UNK
     Dates: start: 20080413
  14. MORPHINE [Concomitant]
     Dosage: 7 MG, UNK
     Route: 042
     Dates: start: 20080409
  15. ZOLOFT [Concomitant]
     Dosage: 100 MG, UNK
     Route: 048
     Dates: start: 20080410

REACTIONS (8)
  - INJURY [None]
  - PAIN [None]
  - PULMONARY EMBOLISM [None]
  - NERVOUSNESS [None]
  - DYSPNOEA [None]
  - EMOTIONAL DISTRESS [None]
  - DEPRESSION [None]
  - FEAR OF DEATH [None]
